FAERS Safety Report 7767856-6 (Version None)
Quarter: 2011Q3

REPORT INFORMATION
  Report Type: 
  Country: None (occurrence: None)
  Receive Date: 20110922
  Receipt Date: 20110420
  Transmission Date: 20111222
  Serious: No
  Sender: FDA-Public Use
  Company Number: US-ASTRAZENECA-2011SE23495

PATIENT
  Age: 8921 Day
  Sex: Female
  Weight: 113.4 kg

DRUGS (1)
  1. SEROQUEL XR [Suspect]
     Indication: BIPOLAR DISORDER
     Route: 048
     Dates: start: 20090101, end: 20110414

REACTIONS (5)
  - PARANOIA [None]
  - MANIA [None]
  - DRUG DOSE OMISSION [None]
  - INSOMNIA [None]
  - ANXIETY [None]
